FAERS Safety Report 5089546-3 (Version None)
Quarter: 2006Q3

REPORT INFORMATION
  Report Type: 
  Country: None (occurrence: None)
  Receive Date: 20060822
  Receipt Date: 20060804
  Transmission Date: 20061208
  Serious: Yes (Disabling)
  Sender: FDA-Public Use
  Company Number: US200608001220

PATIENT
  Age: 67 Year
  Sex: Female

DRUGS (3)
  1. HUMALOG [Suspect]
     Indication: DIABETES MELLITUS
  2. HUMALOG MIX 75/25 [Suspect]
     Indication: DIABETES MELLITUS
     Dosage: 2/D; 35 U, EACH EVENING
     Route: 058
  3. HUMALOG MIX 25L/75NPL PEN              (HUMALOG MIX 25L/75NPL PEN) [Concomitant]

REACTIONS (8)
  - ARTHRITIS [None]
  - IATROGENIC INJURY [None]
  - LIMB DISCOMFORT [None]
  - MOBILITY DECREASED [None]
  - NEUROPATHY [None]
  - PHARMACEUTICAL PRODUCT COMPLAINT [None]
  - SPEECH DISORDER [None]
  - TOOTH LOSS [None]
